FAERS Safety Report 9272007 (Version 1)
Quarter: 2013Q2

REPORT INFORMATION
  Report Type: Spontaneous
  Country: US (occurrence: US)
  Receive Date: 20130506
  Receipt Date: 20130506
  Transmission Date: 20140414
  Serious: Yes (Other)
  Sender: FDA-Public Use
  Company Number: US-SANOFI-AVENTIS-2013SA045233

PATIENT
  Sex: Male

DRUGS (1)
  1. MULTAQ [Suspect]

REACTIONS (1)
  - Pulmonary toxicity [Recovering/Resolving]
